FAERS Safety Report 5447186-8 (Version None)
Quarter: 2007Q3

REPORT INFORMATION
  Report Type: 
  Country: None (occurrence: None)
  Receive Date: 20070910
  Receipt Date: 20070830
  Transmission Date: 20080115
  Serious: Yes (Other)
  Sender: FDA-Public Use
  Company Number: PHFR2007GB02396

PATIENT
  Age: 84 Year
  Sex: Male

DRUGS (2)
  1. AZATHIOPRINE [Concomitant]
     Indication: PSORIASIS
     Route: 048
  2. FAMCICLOVIR [Suspect]
     Indication: HERPES ZOSTER
     Dosage: SINGLE DOSE
     Route: 048

REACTIONS (3)
  - CONFUSIONAL STATE [None]
  - PETIT MAL EPILEPSY [None]
  - RESTLESSNESS [None]
